FAERS Safety Report 5082023-5 (Version None)
Quarter: 2006Q3

REPORT INFORMATION
  Report Type: 
  Country: None (occurrence: None)
  Receive Date: 20060817
  Receipt Date: 20060807
  Transmission Date: 20061208
  Serious: Yes (Hospitalization)
  Sender: FDA-Public Use
  Company Number: PHBS2006TR11794

PATIENT
  Age: 26 Year
  Sex: Female

DRUGS (3)
  1. STARLIX [Suspect]
     Dosage: 20 TABLETS, ONCE/SINGLE
     Route: 048
     Dates: start: 20060803, end: 20060803
  2. DIOVAN HCT [Suspect]
     Dosage: 20 TABLETS, ONCE/SINGLE
     Route: 048
     Dates: start: 20060803, end: 20060803
  3. LESCOL XL [Suspect]
     Dosage: 20 TABLET, ONCE/SINGLE
     Route: 048
     Dates: start: 20060803, end: 20060803

REACTIONS (2)
  - HYPOGLYCAEMIA [None]
  - INTENTIONAL OVERDOSE [None]
